FAERS Safety Report 15663144 (Version 4)
Quarter: 2019Q1

REPORT INFORMATION
  Report Type: Spontaneous
  Country: US (occurrence: US)
  Receive Date: 20181128
  Receipt Date: 20190222
  Transmission Date: 20190417
  Serious: No
  Sender: FDA-Public Use
  Company Number: US-SA-2018SA322855

PATIENT
  Age: 33 Year
  Sex: Female

DRUGS (1)
  1. DUPIXENT [Suspect]
     Active Substance: DUPILUMAB
     Indication: DERMATITIS ATOPIC
     Dosage: 300 MG, QOW
     Route: 058
     Dates: start: 20181108

REACTIONS (4)
  - Injection site pruritus [Unknown]
  - Dry eye [Unknown]
  - Oral herpes [Unknown]
  - Pruritus [Unknown]

NARRATIVE: CASE EVENT DATE: 201811
